FAERS Safety Report 4883412-1 (Version None)
Quarter: 2006Q1

REPORT INFORMATION
  Report Type: 
  Country: None (occurrence: None)
  Receive Date: 20060118
  Receipt Date: 20050209
  Transmission Date: 20060701
  Serious: No
  Sender: FDA-Public Use
  Company Number: MK200502-0121-1

PATIENT
  Age: 70 Year
  Sex: Female

DRUGS (1)
  1. NEUTROSPEC [Suspect]
     Indication: INFECTION
     Dosage: 10 MCI, ONE TIME, IV
     Route: 042
     Dates: start: 20050209, end: 20050209

REACTIONS (2)
  - MALAISE [None]
  - SOMNOLENCE [None]
